FAERS Safety Report 6602604-4 (Version None)
Quarter: 2010Q1

REPORT INFORMATION
  Report Type: 
  Country: None (occurrence: None)
  Receive Date: 20100217
  Receipt Date: 20100206
  Transmission Date: 20100710
  Serious: Yes (Hospitalization)
  Sender: FDA-Public Use
  Company Number: 10-054

PATIENT
  Age: 71 Year
  Sex: Male

DRUGS (5)
  1. ALEVE [Suspect]
     Indication: BACK PAIN
     Dosage: 440 MG, DAILY, ORAL
     Route: 048
     Dates: start: 20100118
  2. UNK BLOOD PRESSURE MEDICATION [Concomitant]
  3. LASIX [Concomitant]
  4. UNK STATIN DRUG [Concomitant]
  5. ALEVE (CAPLET) [Concomitant]

REACTIONS (12)
  - ANURIA [None]
  - BACTERAEMIA [None]
  - BLOOD PRESSURE DECREASED [None]
  - DIZZINESS [None]
  - DRUG HYPERSENSITIVITY [None]
  - EXOPHTHALMOS [None]
  - KIDNEY INFECTION [None]
  - LOSS OF CONSCIOUSNESS [None]
  - MALAISE [None]
  - OCULAR HYPERAEMIA [None]
  - RENAL FAILURE [None]
  - URINARY INCONTINENCE [None]
